FAERS Safety Report 9709354 (Version 3)
Quarter: 2013Q4

REPORT INFORMATION
  Report Type: Report from Study
  Country: MX (occurrence: MX)
  Receive Date: 20131125
  Receipt Date: 20131129
  Transmission Date: 20140711
  Serious: Yes (Death)
  Sender: FDA-Public Use
  Company Number: MX-ROCHE-1203395

PATIENT
  Sex: Female

DRUGS (4)
  1. XELODA [Suspect]
     Indication: BREAST CANCER METASTATIC
     Route: 048
     Dates: start: 2011, end: 201304
  2. LAPATINIB [Concomitant]
     Indication: BREAST CANCER METASTATIC
     Route: 048
     Dates: start: 2011, end: 201304
  3. HERCEPTIN [Concomitant]
     Indication: BREAST CANCER METASTATIC
     Route: 042
     Dates: start: 2011, end: 201304
  4. AVASTIN [Concomitant]
     Indication: BREAST CANCER METASTATIC
     Route: 042
     Dates: start: 2011, end: 201304

REACTIONS (4)
  - Metastases to bone [Fatal]
  - Metastases to central nervous system [Fatal]
  - Diplopia [Unknown]
  - Balance disorder [Unknown]
